FAERS Safety Report 23554143 (Version 2)
Quarter: 2024Q1

REPORT INFORMATION
  Report Type: Spontaneous
  Country: US (occurrence: US)
  Receive Date: 20240222
  Receipt Date: 20240306
  Transmission Date: 20240410
  Serious: Yes (Hospitalization, Other)
  Sender: FDA-Public Use
  Company Number: US-PPDUS-2024ST001127

PATIENT
  Age: 53 Year
  Sex: Female

DRUGS (1)
  1. ORSERDU [Suspect]
     Active Substance: ELACESTRANT
     Indication: Product used for unknown indication
     Dosage: 345MG ONCE DAILY
     Route: 048
     Dates: start: 20231113

REACTIONS (11)
  - Infection [Unknown]
  - Sepsis [Unknown]
  - Kidney infection [Unknown]
  - Product dose omission issue [Unknown]
  - Renal failure [Unknown]
  - Blood potassium decreased [Unknown]
  - Peripheral swelling [Unknown]
  - Abdominal distension [Unknown]
  - Haemoglobin decreased [Unknown]
  - Blood sodium decreased [Unknown]
  - Abdominal pain upper [Unknown]
